FAERS Safety Report 5121928-3 (Version None)
Quarter: 2006Q4

REPORT INFORMATION
  Report Type: 
  Country: None (occurrence: None)
  Receive Date: 20061006
  Receipt Date: 20060927
  Transmission Date: 20070319
  Serious: Yes (Other)
  Sender: FDA-Public Use
  Company Number: 2006UW19015

PATIENT
  Age: 83 Year
  Sex: Female

DRUGS (10)
  1. ATACAND [Suspect]
     Route: 048
     Dates: end: 20060401
  2. ALTACE [Suspect]
     Route: 048
     Dates: end: 20060401
  3. ASPIRIN [Suspect]
     Indication: PROPHYLAXIS
     Route: 048
     Dates: start: 20060301, end: 20060815
  4. LOPRESSOR [Concomitant]
  5. LOVASTATIN [Concomitant]
  6. TRIMETHOPRIM [Concomitant]
  7. AGGRENOX [Concomitant]
  8. FOSAMAX [Concomitant]
  9. CENTRUM [Concomitant]
  10. ASCORBIC ACID [Concomitant]

REACTIONS (4)
  - BLOOD POTASSIUM INCREASED [None]
  - BLOOD PRESSURE INCREASED [None]
  - CEREBROVASCULAR ACCIDENT [None]
  - DEAFNESS UNILATERAL [None]
